FAERS Safety Report 13773341 (Version 1)
Quarter: 2017Q3

REPORT INFORMATION
  Report Type: Spontaneous
  Country: US (occurrence: US)
  Receive Date: 20170720
  Receipt Date: 20170720
  Transmission Date: 20171127
  Serious: No
  Sender: FDA-Public Use
  Company Number: US-BAYER-2017-136579

PATIENT

DRUGS (1)
  1. CHLOR-TRIMETON 12 HOUR [Suspect]
     Active Substance: CHLORPHENIRAMINE MALEATE
     Dosage: UNK

REACTIONS (2)
  - Product use in unapproved indication [Unknown]
  - Off label use [Unknown]
